FAERS Safety Report 6760854-0 (Version None)
Quarter: 2010Q2

REPORT INFORMATION
  Report Type: 
  Country: None (occurrence: None)
  Receive Date: 20100608
  Receipt Date: 20100601
  Transmission Date: 20101027
  Serious: Yes (Death, Other)
  Sender: FDA-Public Use
  Company Number: PHHY2010AU36062

PATIENT
  Age: 3 Month

DRUGS (1)
  1. ZOLEDRONIC ACID [Suspect]
     Indication: VASCULAR CALCIFICATION
     Dosage: 0.04 MG/KG, UNK
     Route: 042

REACTIONS (6)
  - BLOOD CALCIUM DECREASED [None]
  - BLOOD PHOSPHORUS DECREASED [None]
  - HYPERTENSION [None]
  - HYPOTENSION [None]
  - MECHANICAL VENTILATION [None]
  - MYOCARDIAL ISCHAEMIA [None]
